FAERS Safety Report 5613994-3 (Version None)
Quarter: 2008Q1

REPORT INFORMATION
  Report Type: 
  Country: None (occurrence: None)
  Receive Date: 20080129
  Receipt Date: 20080123
  Transmission Date: 20080703
  Serious: Yes (Death)
  Sender: FDA-Public Use
  Company Number: TCI2008A00255

PATIENT
  Age: 84 Year
  Sex: Male

DRUGS (4)
  1. LANSOPRAZOLE [Suspect]
     Indication: GASTRIC HAEMORRHAGE
     Dosage: 15 MG (15 MG, 1 IN 1 D) PER ORAL
     Route: 048
     Dates: start: 20071207, end: 20080107
  2. FULCALIQ 2 (MIXED AMINO ACID/CARBOHYDRATE/ELECTROLYTE/VITAMIN) (INJECT [Concomitant]
  3. MINERALIN (MINERALIN) (INJECTION) [Concomitant]
  4. LASIX (FUROSEMIDE) (INJECTION) [Concomitant]

REACTIONS (1)
  - EOSINOPHIL PERCENTAGE INCREASED [None]
